FAERS Safety Report 14353203 (Version 1)
Quarter: 2018Q1

REPORT INFORMATION
  Report Type: Spontaneous
  Country: AT (occurrence: AT)
  Receive Date: 20180105
  Receipt Date: 20180105
  Transmission Date: 20180509
  Serious: Yes (Other)
  Sender: FDA-Public Use
  Company Number: AT-CONCORDIA PHARMACEUTICALS INC.-E2B_00009308

PATIENT
  Age: 72 Year
  Sex: Male

DRUGS (3)
  1. THEALOZ DUO AUGENTROPFEN [Concomitant]
  2. PREDNISOLONE. [Suspect]
     Active Substance: PREDNISOLONE
     Indication: CORNEAL TRANSPLANT
     Dosage: INITIAL: 1 DOSAGE FORM 3 TIMES A DAY; THEN: 1 DOSAGE FORM 2 TIMES A DAY
     Dates: start: 201705
  3. ALNA RETARD [Concomitant]
     Active Substance: TAMSULOSIN HYDROCHLORIDE
     Indication: PROSTATIC DISORDER

REACTIONS (1)
  - Conjunctival haemorrhage [Not Recovered/Not Resolved]

NARRATIVE: CASE EVENT DATE: 201705
